FAERS Safety Report 7711929-0 (Version None)
Quarter: 2011Q3

REPORT INFORMATION
  Report Type: 
  Country: None (occurrence: None)
  Receive Date: 20110826
  Receipt Date: 20110816
  Transmission Date: 20111222
  Serious: Yes (Other)
  Sender: FDA-Public Use
  Company Number: KR-BRISTOL-MYERS SQUIBB COMPANY-15975287

PATIENT
  Age: 49 Year
  Sex: Female

DRUGS (4)
  1. ADEFOVIR DIPIVOXIL KIT [Suspect]
     Indication: HEPATITIS B
     Dates: start: 20090817
  2. LEVOSULPIRIDE [Concomitant]
     Dates: start: 20070702
  3. SYNTHROID [Concomitant]
     Dates: start: 20051013
  4. BARACLUDE [Suspect]
     Route: 048

REACTIONS (1)
  - MYALGIA [None]
